FAERS Safety Report 8036764-8 (Version None)
Quarter: 2012Q1

REPORT INFORMATION
  Report Type: 
  Country: None (occurrence: None)
  Receive Date: 20120111
  Receipt Date: 20120106
  Transmission Date: 20120608
  Serious: Yes (Death, Other)
  Sender: FDA-Public Use
  Company Number: US-CELGENEUS-163-21880-11050437

PATIENT
  Sex: Female
  Weight: 68.1 kg

DRUGS (7)
  1. ZOMETA [Concomitant]
     Dosage: 4 MILLIGRAM
     Route: 065
     Dates: start: 20100204
  2. PRILOSEC [Concomitant]
     Dosage: 20 MILLIGRAM
     Route: 048
  3. LEVAQUIN [Concomitant]
     Dosage: 250 MILLIGRAM
     Route: 048
     Dates: start: 20110523
  4. PROZAC [Concomitant]
     Dosage: 10 MILLIGRAM
     Route: 048
     Dates: start: 20110328
  5. REVLIMID [Suspect]
     Indication: MULTIPLE MYELOMA
     Dosage: 15 MILLIGRAM
     Route: 048
     Dates: start: 20101202, end: 20110501
  6. DEXAMETHASONE TAB [Concomitant]
     Dosage: 40 MILLIGRAM
     Route: 048
     Dates: start: 20101130, end: 20110701
  7. MULTI-VITAMINS [Concomitant]
     Dosage: 1
     Route: 048
     Dates: start: 20100209

REACTIONS (4)
  - NEUTROPHIL COUNT DECREASED [None]
  - MULTIPLE MYELOMA [None]
  - WHITE BLOOD CELL COUNT DECREASED [None]
  - PLATELET COUNT DECREASED [None]
